FAERS Safety Report 8853236 (Version 1)
Quarter: 2012Q4

REPORT INFORMATION
  Report Type: 
  Country: US (occurrence: US)
  Receive Date: 20121022
  Receipt Date: 20121022
  Transmission Date: 20130627
  Serious: Yes (Other)
  Sender: FDA-Public Use
  Company Number: CHPA2012US016237

PATIENT
  Sex: Female

DRUGS (1)
  1. EXCEDRIN MIGRAINE [Suspect]
     Indication: HEADACHE
     Dosage: 9-12 DF a day
     Route: 048
     Dates: start: 1998

REACTIONS (7)
  - Withdrawal syndrome [Unknown]
  - Fatigue [Unknown]
  - Pain [Unknown]
  - Malaise [Unknown]
  - Abdominal discomfort [Unknown]
  - Overdose [Unknown]
  - Incorrect dose administered [Unknown]
